FAERS Safety Report 10090193 (Version 1)
Quarter: 2014Q2

REPORT INFORMATION
  Report Type: Spontaneous
  Country: US (occurrence: US)
  Receive Date: 20140421
  Receipt Date: 20140421
  Transmission Date: 20141212
  Serious: Yes (Hospitalization)
  Sender: FDA-Public Use
  Company Number: US-GLAXOSMITHKLINE-A1069295A

PATIENT
  Sex: Female

DRUGS (4)
  1. ADVAIR [Suspect]
     Indication: DYSPNOEA
     Dosage: 1PUFF TWICE PER DAY
     Route: 055
     Dates: start: 2011
  2. VENTOLIN [Suspect]
     Indication: ASTHMA
  3. ALLERGY MEDICINE [Concomitant]
  4. PROVENTIL [Concomitant]

REACTIONS (4)
  - Pneumonia [Not Recovered/Not Resolved]
  - Dyspnoea [Not Recovered/Not Resolved]
  - Weight increased [Unknown]
  - Drug ineffective [Unknown]
